FAERS Safety Report 18021290 (Version 2)
Quarter: 2020Q3

REPORT INFORMATION
  Report Type: Spontaneous
  Country: US (occurrence: BR)
  Receive Date: 20200714
  Receipt Date: 20200828
  Transmission Date: 20201103
  Serious: Yes (Other)
  Sender: FDA-Public Use
  Company Number: BR-BIOMARINAP-BR-2020-131102

PATIENT
  Age: 16 Month
  Sex: Female
  Weight: 11.5 kg

DRUGS (1)
  1. ALDURAZYME [Suspect]
     Active Substance: LARONIDASE
     Indication: MUCOPOLYSACCHARIDOSIS
     Dosage: 2 DOSAGE FORM, QW
     Route: 041
     Dates: start: 20190901

REACTIONS (3)
  - Immunosuppression [Recovering/Resolving]
  - Bone marrow transplant [Recovering/Resolving]
  - Vomiting [Recovered/Resolved]

NARRATIVE: CASE EVENT DATE: 20200310
